FAERS Safety Report 5193961-7 (Version None)
Quarter: 2006Q4

REPORT INFORMATION
  Report Type: 
  Country: None (occurrence: None)
  Receive Date: 20061222
  Receipt Date: 20061211
  Transmission Date: 20070319
  Serious: Yes (Other)
  Sender: FDA-Public Use
  Company Number: 2006063691

PATIENT
  Age: 49 Year
  Sex: Female

DRUGS (5)
  1. NEURONTIN [Suspect]
     Indication: NEURALGIA
     Dates: start: 20030130
  2. PERCOCET [Concomitant]
  3. CELEBREX [Concomitant]
  4. DARVOCET [Concomitant]
  5. ZOLOFT [Concomitant]

REACTIONS (3)
  - DRUG INEFFECTIVE [None]
  - MULTIPLE DRUG OVERDOSE [None]
  - SUICIDE ATTEMPT [None]
